FAERS Safety Report 19826787 (Version 1)
Quarter: 2021Q3

REPORT INFORMATION
  Report Type: Spontaneous
  Country: US (occurrence: US)
  Receive Date: 20210910
  Receipt Date: 20210910
  Transmission Date: 20211014
  Serious: No
  Sender: FDA-Public Use
  Company Number: None

PATIENT
  Sex: Female

DRUGS (28)
  1. ALBUTEROL. [Concomitant]
     Active Substance: ALBUTEROL
  2. HALLS COUGH [Concomitant]
  3. PHENEGRAN [Concomitant]
  4. SUDAFED [Concomitant]
     Active Substance: PSEUDOEPHEDRINE HYDROCHLORIDE
  5. CALCIUM [Concomitant]
     Active Substance: CALCIUM
  6. DICYCLOMINE [Concomitant]
     Active Substance: DICYCLOMINE HYDROCHLORIDE
  7. FIRAZYR [Concomitant]
     Active Substance: ICATIBANT ACETATE
  8. RICOLALMN [Concomitant]
  9. SPACER CHAMB [Concomitant]
  10. SALINE FLUSHING [Concomitant]
  11. SIMVASTATIN. [Concomitant]
     Active Substance: SIMVASTATIN
  12. DOCUSATE [Concomitant]
     Active Substance: DOCUSATE
  13. MS CONTTINI [Concomitant]
  14. ICATIBANT [Suspect]
     Active Substance: ICATIBANT ACETATE
     Indication: PRODUCT USED FOR UNKNOWN INDICATION
     Route: 058
     Dates: start: 20210430
  15. CLOTRIMAZOLE. [Concomitant]
     Active Substance: CLOTRIMAZOLE
  16. CYMBALTA [Concomitant]
     Active Substance: DULOXETINE HYDROCHLORIDE
  17. IMITREX [Concomitant]
     Active Substance: SUMATRIPTAN SUCCINATE
  18. OXYCODONE [Concomitant]
     Active Substance: OXYCODONE
  19. BENTYL [Concomitant]
     Active Substance: DICYCLOMINE HYDROCHLORIDE
  20. OMPERAZOLE [Concomitant]
     Active Substance: OMEPRAZOLE
  21. TAKHZYRO [Concomitant]
     Active Substance: LANADELUMAB-FLYO
  22. DULOEXTINE [Concomitant]
  23. EPINEPHRINE. [Concomitant]
     Active Substance: EPINEPHRINE
  24. PROMETHAZINE [Concomitant]
     Active Substance: PROMETHAZINE HYDROCHLORIDE
  25. ROBITUSSIN (GUAIFENESIN) [Concomitant]
     Active Substance: GUAIFENESIN
  26. FLUOCINOLONE [Concomitant]
     Active Substance: FLUOCINOLONE
  27. LEVOTHYROXIN [Concomitant]
     Active Substance: LEVOTHYROXINE
  28. VITAMIN D3 [Concomitant]
     Active Substance: CHOLECALCIFEROL

REACTIONS (1)
  - Hereditary angioedema [None]
